FAERS Safety Report 10194716 (Version 3)
Quarter: 2014Q3

REPORT INFORMATION
  Report Type: Spontaneous
  Country: IT (occurrence: IT)
  Receive Date: 20140526
  Receipt Date: 20140730
  Transmission Date: 20150326
  Serious: Yes (Hospitalization)
  Sender: FDA-Public Use
  Company Number: IT-ROCHE-1406099

PATIENT
  Age: 31 Year
  Sex: Male

DRUGS (2)
  1. RIVOTRIL [Suspect]
     Active Substance: CLONAZEPAM
     Indication: PRODUCT USED FOR UNKNOWN INDICATION
     Route: 048
     Dates: start: 20140516, end: 20140516
  2. PAROXETINE [Concomitant]
     Active Substance: PAROXETINE\PAROXETINE HYDROCHLORIDE
     Route: 065

REACTIONS (5)
  - Sopor [Recovering/Resolving]
  - Head injury [Recovering/Resolving]
  - Syncope [Recovering/Resolving]
  - Drug abuse [Unknown]
  - Skull fracture [Recovering/Resolving]

NARRATIVE: CASE EVENT DATE: 20140516
